FAERS Safety Report 15678642 (Version 1)
Quarter: 2018Q4

REPORT INFORMATION
  Report Type: Spontaneous
  Country: US (occurrence: US)
  Receive Date: 20181130
  Receipt Date: 20181130
  Transmission Date: 20190205
  Serious: Yes (Hospitalization)
  Sender: FDA-Public Use
  Company Number: None

PATIENT
  Age: 70 Year
  Sex: Female

DRUGS (9)
  1. D 1000 CAP 1000 UNIT [Concomitant]
  2. METHOTREXATE TAB 2.5MG [Concomitant]
     Active Substance: METHOTREXATE
  3. HUMIRA [Suspect]
     Active Substance: ADALIMUMAB
     Indication: RHEUMATOID ARTHRITIS
     Dosage: ?          OTHER FREQUENCY:EVERY 7 DAYS;?
     Route: 058
  4. IMITREX TAB 50MG [Concomitant]
  5. LOSARTAN POT TAB 100MG [Concomitant]
  6. DORZOL/TIMOL SOL 22.3-6.8 [Concomitant]
     Dates: start: 20181128
  7. DUREZOL EMU 0.05% [Concomitant]
     Dates: start: 20181128
  8. ERYTHROMYCIN OIN OP [Concomitant]
     Dates: start: 20181128
  9. FOLIC ACID TAB 1MG [Concomitant]

REACTIONS (1)
  - Arthritis [None]

NARRATIVE: CASE EVENT DATE: 20181108
